FAERS Safety Report 9200767 (Version 1)
Quarter: 2013Q1

REPORT INFORMATION
  Report Type: Spontaneous
  Country: PL (occurrence: None)
  Receive Date: 20130327
  Receipt Date: 20130327
  Transmission Date: 20140127
  Serious: Yes (Hospitalization)
  Sender: FDA-Public Use
  Company Number: AUR-APL-2013-02474

PATIENT
  Age: 54 Year
  Sex: Female
  Weight: 80 kg

DRUGS (3)
  1. OLANZAPINE (OLANZAPINE) [Suspect]
     Indication: PRODUCT USED FOR UNKNOWN INDICATION
  2. TISERCIN (LEVOMEPROMAZINE) [Suspect]
     Indication: PRODUCT USED FOR UNKNOWN INDICATION
  3. HYDROXYZYNA [Suspect]
     Indication: PRODUCT USED FOR UNKNOWN INDICATION

REACTIONS (2)
  - Toxicity to various agents [None]
  - Unresponsive to stimuli [None]
